FAERS Safety Report 7610282-0 (Version None)
Quarter: 2011Q3

REPORT INFORMATION
  Report Type: 
  Country: None (occurrence: None)
  Receive Date: 20110713
  Receipt Date: 20110713
  Transmission Date: 20111222
  Serious: No
  Sender: FDA-Public Use
  Company Number: None

PATIENT
  Sex: Female
  Weight: 86.1834 kg

DRUGS (1)
  1. COLCRYS [Suspect]
     Indication: GOUT
     Dosage: ONE A DAY - OLD ONE/HELP YOU THE SAME DAY. NEW ONE-THE NEXT DAY.

REACTIONS (2)
  - DRUG EFFECT DELAYED [None]
  - PRODUCT SUBSTITUTION ISSUE [None]
